FAERS Safety Report 9490695 (Version 1)
Quarter: 2013Q3

REPORT INFORMATION
  Report Type: Report from Study
  Country: US (occurrence: US)
  Receive Date: 20130830
  Receipt Date: 20130830
  Transmission Date: 20140515
  Serious: Yes (Other)
  Sender: FDA-Public Use
  Company Number: US-JNJFOC-20130814632

PATIENT
  Age: 52 Year
  Sex: Female
  Weight: 106.6 kg

DRUGS (21)
  1. SIMPONI [Suspect]
     Indication: OSTEOARTHRITIS
     Route: 058
     Dates: start: 201102
  2. SIMPONI [Suspect]
     Indication: RHEUMATOID ARTHRITIS
     Route: 058
     Dates: start: 201102
  3. NEURONTIN [Suspect]
     Indication: PRODUCT USED FOR UNKNOWN INDICATION
     Route: 048
     Dates: end: 2013
  4. COQ10 [Concomitant]
     Indication: OSTEOPOROSIS
     Route: 048
  5. VITAMIN C AND D [Concomitant]
     Indication: OSTEOPOROSIS
     Route: 048
  6. OMEGA 3 [Concomitant]
     Indication: OSTEOPOROSIS
     Route: 048
  7. ALL OTHER THERAPEUTIC DRUGS [Concomitant]
     Indication: OSTEOPOROSIS
     Dosage: DOSE: 1 CAN
     Route: 048
  8. ISOPURE WHEY PROTEIN [Concomitant]
     Indication: OSTEOPOROSIS
     Route: 048
  9. COLLAGEN [Concomitant]
     Indication: OSTEOPOROSIS
     Route: 048
  10. OSTEO BI-FLEX [Concomitant]
     Indication: OSTEOPOROSIS
     Dosage: 2/TABLET
     Route: 048
     Dates: start: 2013
  11. CENTRUM SILVER [Concomitant]
     Dosage: DOSE: 1
     Route: 048
  12. POTASSIUM [Concomitant]
     Indication: OEDEMA
     Route: 048
  13. LASIX [Concomitant]
     Indication: OEDEMA
     Route: 048
  14. TOPAMAX [Concomitant]
     Indication: INTERVERTEBRAL DISC DISORDER
     Route: 048
  15. TOPAMAX [Concomitant]
     Indication: HEADACHE
     Route: 048
  16. VALIUM [Concomitant]
     Indication: ANXIETY
     Route: 048
  17. PROZAC [Concomitant]
     Indication: DEPRESSION
     Route: 048
  18. PROTONIX [Concomitant]
     Indication: HIATUS HERNIA
     Route: 048
  19. VENTOLIN [Concomitant]
     Indication: ASTHMA
     Dosage: DOSE: 2 PUFFS, AS NEEDED
     Route: 055
  20. MORPHINE [Concomitant]
     Indication: PAIN
     Route: 048
  21. NORCO [Concomitant]
     Indication: PAIN
     Route: 048

REACTIONS (6)
  - Joint dislocation [Recovered/Resolved]
  - Bone disorder [Not Recovered/Not Resolved]
  - Purulent discharge [Not Recovered/Not Resolved]
  - Wound [Not Recovered/Not Resolved]
  - Memory impairment [Recovered/Resolved]
  - Malaise [Recovered/Resolved]
